FAERS Safety Report 10760835 (Version 4)
Quarter: 2015Q1

REPORT INFORMATION
  Report Type: Spontaneous
  Country: DE (occurrence: None)
  Receive Date: 20150202
  Receipt Date: 20150323
  Transmission Date: 20150721
  Serious: Yes (Hospitalization, Other)
  Sender: FDA-Public Use
  Company Number: 2015-10465

PATIENT
  Age: 88 Year
  Sex: Male

DRUGS (1)
  1. EYLEA [Suspect]
     Active Substance: AFLIBERCEPT
     Indication: AGE-RELATED MACULAR DEGENERATION
     Dosage: 2 MG, Q2MON, INTRAOCULAR?
     Route: 031
     Dates: start: 20140722, end: 20150106

REACTIONS (4)
  - Eye infection [None]
  - Eye inflammation [None]
  - Purulence [None]
  - Visual acuity reduced [None]

NARRATIVE: CASE EVENT DATE: 20150110
